FAERS Safety Report 11950112 (Version 1)
Quarter: 2016Q1

REPORT INFORMATION
  Report Type: Spontaneous
  Country: KR (occurrence: KR)
  Receive Date: 20160126
  Receipt Date: 20160126
  Transmission Date: 20160526
  Serious: Yes (Hospitalization)
  Sender: FDA-Public Use
  Company Number: KR-AMGEN-KORCT2016008075

PATIENT
  Age: 46 Year
  Sex: Male
  Weight: 72.6 kg

DRUGS (28)
  1. RITUXIMAB [Concomitant]
     Active Substance: RITUXIMAB
     Dosage: 742.5 MG, UNK
     Route: 042
     Dates: start: 20151006, end: 20151006
  2. G-LASTA [Suspect]
     Active Substance: PEGFILGRASTIM
     Dosage: 6 MG, UNK
     Route: 058
     Dates: start: 20150818
  3. CYCLOPHOSPHAMIDE. [Concomitant]
     Active Substance: CYCLOPHOSPHAMIDE
     Dosage: 1462.5 MG, UNK
     Route: 042
     Dates: start: 20151006, end: 20151006
  4. DOXORUBICIN [Concomitant]
     Active Substance: DOXORUBICIN
     Dosage: 95 MG, UNK
     Route: 042
     Dates: start: 20150817, end: 20150817
  5. PREDNISOLONE. [Concomitant]
     Active Substance: PREDNISOLONE
     Dosage: 90 MG, UNK
     Route: 048
     Dates: start: 20150817, end: 20150817
  6. PREDNISOLONE. [Concomitant]
     Active Substance: PREDNISOLONE
     Dosage: 60 MG, UNK
     Route: 048
     Dates: start: 20151006, end: 20151006
  7. CEFEPIME [Concomitant]
     Active Substance: CEFEPIME HYDROCHLORIDE
     Dosage: 4 G, UNK
     Route: 042
     Dates: start: 20150804, end: 20150806
  8. G-LASTA [Suspect]
     Active Substance: PEGFILGRASTIM
     Dosage: 6 MG, UNK
     Route: 058
     Dates: start: 20150912
  9. G-LASTA [Suspect]
     Active Substance: PEGFILGRASTIM
     Dosage: 6 MG, UNK
     Route: 058
     Dates: start: 20151007
  10. CYCLOPHOSPHAMIDE. [Concomitant]
     Active Substance: CYCLOPHOSPHAMIDE
     Dosage: 1425 MG, UNK
     Route: 042
     Dates: start: 20150817, end: 20150817
  11. DOXORUBICIN [Concomitant]
     Active Substance: DOXORUBICIN
     Dosage: 97.5 MG, UNK
     Route: 042
     Dates: start: 20151006, end: 20151006
  12. VINCRISTINE [Concomitant]
     Active Substance: VINCRISTINE
     Dosage: 1.98 MG, UNK
     Route: 042
     Dates: start: 20150911, end: 20150911
  13. PREDNISOLONE. [Concomitant]
     Active Substance: PREDNISOLONE
     Dosage: 50 MG, UNK
     Route: 048
     Dates: start: 20150722, end: 20150722
  14. PREDNISOLONE. [Concomitant]
     Active Substance: PREDNISOLONE
     Dosage: 60 MG, UNK
     Route: 048
     Dates: start: 20150911, end: 20150911
  15. FLUCONAZOLE. [Concomitant]
     Active Substance: FLUCONAZOLE
     Dosage: 50 MG, UNK
     Route: 048
     Dates: start: 20150729, end: 20150802
  16. RITUXIMAB [Concomitant]
     Active Substance: RITUXIMAB
     Dosage: 716.25 MG, UNK
     Route: 042
     Dates: start: 20150911, end: 20150911
  17. CYCLOPHOSPHAMIDE. [Concomitant]
     Active Substance: CYCLOPHOSPHAMIDE
     Dosage: 1432.5 MG, UNK
     Route: 042
     Dates: start: 20150911, end: 20150911
  18. DOXORUBICIN [Concomitant]
     Active Substance: DOXORUBICIN
     Dosage: 96.5 MG, UNK
     Route: 042
     Dates: start: 20150723, end: 20150723
  19. DOXORUBICIN [Concomitant]
     Active Substance: DOXORUBICIN
     Dosage: 95.5 MG, UNK
     Route: 042
     Dates: start: 20150911, end: 20150911
  20. VINCRISTINE [Concomitant]
     Active Substance: VINCRISTINE
     Dosage: 2 MG, UNK
     Route: 042
     Dates: start: 20150723, end: 20150723
  21. VINCRISTINE [Concomitant]
     Active Substance: VINCRISTINE
     Dosage: 1.97 MG, UNK
     Route: 042
     Dates: start: 20150817, end: 20150817
  22. CEFEPIME [Concomitant]
     Active Substance: CEFEPIME HYDROCHLORIDE
     Dosage: 6 G, UNK
     Route: 042
     Dates: start: 20150803, end: 20150803
  23. G-LASTA [Suspect]
     Active Substance: PEGFILGRASTIM
     Indication: FEBRILE NEUTROPENIA
     Dosage: 6 MG, UNK
     Route: 058
     Dates: start: 20150724
  24. RITUXIMAB [Concomitant]
     Active Substance: RITUXIMAB
     Dosage: 712.5 MG, UNK
     Route: 042
     Dates: start: 20150817, end: 20150817
  25. VINCRISTINE [Concomitant]
     Active Substance: VINCRISTINE
     Dosage: 2 MG, UNK
     Route: 042
     Dates: start: 20151006, end: 20151006
  26. RITUXIMAB [Concomitant]
     Active Substance: RITUXIMAB
     Dosage: 723.75 MG, UNK
     Route: 042
     Dates: start: 20150723, end: 20150723
  27. CYCLOPHOSPHAMIDE. [Concomitant]
     Active Substance: CYCLOPHOSPHAMIDE
     Dosage: 1447.5 MG, UNK
     Route: 042
     Dates: start: 20150723, end: 20150723
  28. CEFEPIME [Concomitant]
     Active Substance: CEFEPIME HYDROCHLORIDE
     Dosage: 4 G, UNK
     Route: 042
     Dates: start: 20150730, end: 20150802

REACTIONS (1)
  - Neutropenia [Recovered/Resolved]

NARRATIVE: CASE EVENT DATE: 20151013
